FAERS Safety Report 6816718-7 (Version None)
Quarter: 2010Q3

REPORT INFORMATION
  Report Type: 
  Country: None (occurrence: None)
  Receive Date: 20100706
  Receipt Date: 20100521
  Transmission Date: 20110219
  Serious: Yes (Hospitalization, Other)
  Sender: FDA-Public Use
  Company Number: PHEH2008US01023

PATIENT
  Sex: Female

DRUGS (20)
  1. ELIDEL [Suspect]
     Indication: DERMATITIS
     Dosage: UNK, UNK
     Route: 061
     Dates: start: 20050101
  2. DEXAMETHASONE [Concomitant]
  3. CALCITONIN [Concomitant]
  4. CEFTAZIDIME [Concomitant]
  5. VINCRISTINE [Concomitant]
  6. ONDANSETRON [Concomitant]
  7. METHOTREXATE [Concomitant]
  8. GENTAMYCIN-MP [Concomitant]
  9. PIPERACILLIN [Concomitant]
  10. AMPICILLIN [Concomitant]
  11. AUGMENTIN '125' [Concomitant]
  12. ZITHROMAX [Concomitant]
  13. OMNICEF [Concomitant]
  14. DECADRON [Concomitant]
  15. SEPTRA [Concomitant]
  16. GRANISETRON HCL [Concomitant]
  17. MERCAPTOPURINE [Concomitant]
  18. AMOXICILLIN [Concomitant]
  19. SULFAMETHOXAZOLE [Concomitant]
  20. DOXORUBICIN HCL [Concomitant]

REACTIONS (31)
  - ACUTE LYMPHOCYTIC LEUKAEMIA [None]
  - ACUTE SINUSITIS [None]
  - ADHESION [None]
  - ANAEMIA [None]
  - ARTHRITIS BACTERIAL [None]
  - ARTIFICIAL CROWN PROCEDURE [None]
  - BACK PAIN [None]
  - BLOOD CREATININE INCREASED [None]
  - BLOOD UREA INCREASED [None]
  - C-REACTIVE PROTEIN INCREASED [None]
  - CONJUNCTIVITIS [None]
  - DENTAL CARIES [None]
  - DENTAL OPERATION [None]
  - DIARRHOEA [None]
  - GRAM STAIN POSITIVE [None]
  - HEPATOMEGALY [None]
  - LEUKOCYTOSIS [None]
  - LYMPHOCYTOSIS [None]
  - MYALGIA [None]
  - NEUTROPENIA [None]
  - OSTEOMYELITIS [None]
  - OVERWEIGHT [None]
  - PNEUMONITIS [None]
  - PYREXIA [None]
  - SINUS TACHYCARDIA [None]
  - SPLENOMEGALY [None]
  - TOOTH DISORDER [None]
  - TOOTH EXTRACTION [None]
  - UPPER RESPIRATORY TRACT INFECTION [None]
  - VIRAL INFECTION [None]
  - VOMITING [None]
